FAERS Safety Report 11520050 (Version 1)
Quarter: 2015Q3

REPORT INFORMATION
  Report Type: Spontaneous
  Country: US (occurrence: US)
  Receive Date: 20150918
  Receipt Date: 20150918
  Transmission Date: 20151125
  Serious: No
  Sender: FDA-Public Use
  Company Number: US-RB-069681-14

PATIENT

DRUGS (4)
  1. MUCINEX [Suspect]
     Active Substance: GUAIFENESIN
     Indication: PRODUCT USED FOR UNKNOWN INDICATION
     Dosage: 600MG. 1 TABLET 1 TIME,QD
     Route: 065
     Dates: start: 20141017
  2. LEVAQUIN [Concomitant]
     Active Substance: LEVOFLOXACIN
     Indication: PRODUCT USED FOR UNKNOWN INDICATION
     Dosage: DOSE UNK, UNITS UNK, FREQUENCY UNK
     Route: 065
  3. VITAMIN C [Concomitant]
     Active Substance: ASCORBIC ACID
     Indication: PRODUCT USED FOR UNKNOWN INDICATION
     Dosage: DOSE UNK, UNITS UNK, FREQUENCY UNK
     Route: 065
  4. ZINC [Concomitant]
     Active Substance: ZINC\ZINC CHLORIDE
     Indication: PRODUCT USED FOR UNKNOWN INDICATION
     Dosage: DOSE UNK, UNITS UNK, FREQUENCY UNK
     Route: 065

REACTIONS (2)
  - Insomnia [Unknown]
  - Agitation [Unknown]
